FAERS Safety Report 23505010 (Version 1)
Quarter: 2024Q1

REPORT INFORMATION
  Report Type: Spontaneous
  Country: US (occurrence: US)
  Receive Date: 20240209
  Receipt Date: 20240209
  Transmission Date: 20240410
  Serious: No
  Sender: FDA-Public Use
  Company Number: US-ALKEM LABORATORIES LIMITED-US-ALKEM-2022-15241

PATIENT
  Age: 72 Year
  Sex: Male

DRUGS (1)
  1. GABAPENTIN [Suspect]
     Active Substance: GABAPENTIN
     Indication: Alcohol withdrawal syndrome
     Dosage: 300 MILLIGRAMS, TID (THREE TIMES A DAY), (RECEIVING THE FIRST DOSE AT THE SNF)
     Route: 065

REACTIONS (1)
  - Urinary incontinence [Recovered/Resolved]
